FAERS Safety Report 4467255-9 (Version None)
Quarter: 2004Q4

REPORT INFORMATION
  Report Type: 
  Country: None (occurrence: None)
  Receive Date: 20041001
  Receipt Date: 20040917
  Transmission Date: 20050328
  Serious: Yes (Other)
  Sender: FDA-Public Use
  Company Number: 2004-09-1128

PATIENT
  Age: 9 Year
  Sex: Male

DRUGS (1)
  1. CLARITIN [Suspect]
     Indication: RHINORRHOEA
     Dosage: 2 TEASPOONS ORAL
     Route: 048
     Dates: start: 20040915, end: 20040915

REACTIONS (3)
  - COUGH [None]
  - DYSPNOEA [None]
  - VOMITING [None]
